FAERS Safety Report 19070670 (Version 1)
Quarter: 2021Q1

REPORT INFORMATION
  Report Type: Spontaneous
  Country: US (occurrence: US)
  Receive Date: 20210330
  Receipt Date: 20210330
  Transmission Date: 20210420
  Serious: Yes (Other)
  Sender: FDA-Public Use
  Company Number: US-JNJFOC-20190610815

PATIENT
  Age: 16 Year
  Sex: Female
  Weight: 52 kg

DRUGS (10)
  1. TYLENOL [Concomitant]
     Active Substance: ACETAMINOPHEN
     Indication: PAIN
     Dosage: 2 TABLETS (650 MG TOTAL) BY MOUTH EVERY 6 (SIX) HOURS AS NEEDED FOR MILD PAIN OR HEADACHE
     Route: 048
  2. TYLENOL [Concomitant]
     Active Substance: ACETAMINOPHEN
     Indication: HEADACHE
  3. ZOFRAN [Concomitant]
     Active Substance: ONDANSETRON HYDROCHLORIDE
     Indication: NAUSEA
     Dosage: 1 TABLET 4 MG TOTAL) BY MOUTH EVERY 8 (EIGHT) HOURS AS NEEDED
     Route: 048
  4. INDERAL LA [Concomitant]
     Active Substance: PROPRANOLOL HYDROCHLORIDE
     Indication: PRODUCT USED FOR UNKNOWN INDICATION
     Dosage: 1 CAPSULE (80 MG TOTAL) BY MOUTH DAILY,
     Route: 048
  5. INDERAL [Concomitant]
     Active Substance: PROPRANOLOL HYDROCHLORIDE
     Indication: PRODUCT USED FOR UNKNOWN INDICATION
     Dosage: 2 TABLETS (20 MG TOTAL) BY MOUTH 3 (THREE) TIMES A DAY.
     Route: 048
  6. SODIUM CHLORIDE. [Concomitant]
     Active Substance: SODIUM CHLORIDE
     Indication: PRODUCT USED FOR UNKNOWN INDICATION
     Dosage: 1 TABLET (1 G TOTAL) BY MOUTH 3 (THREE) TIMES A DAY (PATIENT WAS TAKING DIFFERENTLY: TOOK 1 G BY MOU
     Route: 048
  7. ADDERALL [Concomitant]
     Active Substance: AMPHETAMINE ASPARTATE\AMPHETAMINE SULFATE\DEXTROAMPHETAMINE SACCHARATE\DEXTROAMPHETAMINE SULFATE
     Indication: PRODUCT USED FOR UNKNOWN INDICATION
     Route: 048
  8. MIRALAX [Concomitant]
     Active Substance: POLYETHYLENE GLYCOL 3350
     Indication: PRODUCT USED FOR UNKNOWN INDICATION
     Route: 048
  9. PROZAC [Concomitant]
     Active Substance: FLUOXETINE HYDROCHLORIDE
     Indication: PRODUCT USED FOR UNKNOWN INDICATION
     Dosage: 1 CAPSULE (20 MG TOTAL) BY MOUTH DAILY
     Route: 048
  10. AVEENO CLEAR COMPLEXION DAILY MOISTURIZER [Suspect]
     Active Substance: SALICYLIC ACID
     Indication: PROPHYLAXIS AGAINST SOLAR RADIATION
     Dosage: USED ON A DAILY BASIS
     Route: 061
     Dates: start: 20190526

REACTIONS (4)
  - Burns first degree [Recovering/Resolving]
  - Second degree chemical burn of skin [Recovering/Resolving]
  - Sunburn [Recovering/Resolving]
  - Product selection error [Unknown]

NARRATIVE: CASE EVENT DATE: 20190526
